FAERS Safety Report 20607329 (Version 1)
Quarter: 2022Q1

REPORT INFORMATION
  Report Type: Spontaneous
  Country: FR (occurrence: FR)
  Receive Date: 20220317
  Receipt Date: 20220317
  Transmission Date: 20220424
  Serious: Yes (Hospitalization, Other)
  Sender: FDA-Public Use
  Company Number: None

PATIENT
  Age: 45 Year
  Sex: Female

DRUGS (15)
  1. AMBRISENTAN [Suspect]
     Active Substance: AMBRISENTAN
     Indication: Pulmonary arterial hypertension
     Dosage: 10 MG, QD
     Route: 048
     Dates: start: 20090402
  2. EPOPROSTENOL [Suspect]
     Active Substance: EPOPROSTENOL
     Indication: Pulmonary arterial hypertension
     Dosage: 18 NG/KG ,1 MIN
     Route: 041
     Dates: start: 20070725
  3. TADALAFIL [Concomitant]
     Active Substance: TADALAFIL
     Dosage: 10 MG 1-0-0
  4. ESOMEPRAZOLE [Concomitant]
     Active Substance: ESOMEPRAZOLE
     Dosage: 20 MG MORNING AND EVENING
  5. POTASSIUM CHLORIDE [Concomitant]
     Active Substance: POTASSIUM CHLORIDE
     Dosage: 600 MG LP: 3 TABLETS MORNING NOON AND EVENING
  6. FUROSEMIDE [Concomitant]
     Active Substance: FUROSEMIDE
     Dosage: 500 MG: 1/2 TABLET IN THE MORNING
  7. FLUINDIONE [Concomitant]
     Active Substance: FLUINDIONE
     Dosage: 20 MG: 1 1/2 TABLETS IN THE EVENING
  8. BROMAZEPAM [Concomitant]
     Active Substance: BROMAZEPAM
     Dosage: 6 MG: 1/2 TABLET IN THE EVENING
  9. DESLORATADINE [Concomitant]
     Active Substance: DESLORATADINE
     Dosage: 5 MG: 1 TAB./DAY
  10. IMODIUM [Concomitant]
     Active Substance: LOPERAMIDE HYDROCHLORIDE
     Dosage: 2 MG IF LOOSE STOOLS
  11. ETHINYL ESTRADIOL\LEVONORGESTREL [Concomitant]
     Active Substance: ETHINYL ESTRADIOL\LEVONORGESTREL
  12. VOGALENE [Concomitant]
     Active Substance: METOPIMAZINE
     Dosage: 7.5 MG 3 X DAILY 30 MINUTES BEFORE MEALS
  13. DAFALGAN CODEINE [Concomitant]
     Active Substance: ACETAMINOPHEN\CODEINE PHOSPHATE
     Dosage: 30/500MG 2 X PER DAY IF NEEDED
  14. CARBOCYSTEINE [Concomitant]
     Active Substance: CARBOCYSTEINE
     Dosage: ??5%: 1 TABLESPOON MORNING NOON AND EVENING
  15. DOLIPRANE [Concomitant]
     Active Substance: ACETAMINOPHEN
     Dosage: 1 G 3 X PER DAY IF NEEDED

REACTIONS (2)
  - Myelofibrosis [Not Recovered/Not Resolved]
  - Thrombocytopenia [Not Recovered/Not Resolved]

NARRATIVE: CASE EVENT DATE: 20150101
